FAERS Safety Report 20993538 (Version 6)
Quarter: 2025Q2

REPORT INFORMATION
  Report Type: Report from Study
  Country: CA (occurrence: CA)
  Receive Date: 20220622
  Receipt Date: 20250502
  Transmission Date: 20250716
  Serious: Yes (Hospitalization, Other)
  Sender: TAKEDA
  Company Number: CA-TAKEDA-2022TUS007262

PATIENT
  Age: 31 Year
  Sex: Female
  Weight: 65.76 kg

DRUGS (7)
  1. VEDOLIZUMAB [Suspect]
     Active Substance: VEDOLIZUMAB
     Indication: Colitis ulcerative
  2. VEDOLIZUMAB [Suspect]
     Active Substance: VEDOLIZUMAB
  3. VEDOLIZUMAB [Suspect]
     Active Substance: VEDOLIZUMAB
  4. VEDOLIZUMAB [Suspect]
     Active Substance: VEDOLIZUMAB
  5. VEDOLIZUMAB [Suspect]
     Active Substance: VEDOLIZUMAB
     Indication: Colitis ulcerative
     Dosage: 108 MILLIGRAM, Q2WEEKS
     Dates: start: 20220505
  6. CORTIFOAM [Concomitant]
     Active Substance: HYDROCORTISONE ACETATE
  7. BUDESONIDE [Concomitant]
     Active Substance: BUDESONIDE

REACTIONS (12)
  - Abortion spontaneous [Unknown]
  - Colitis ulcerative [Unknown]
  - Cervical dysplasia [Recovering/Resolving]
  - Therapeutic product effect decreased [Unknown]
  - Scar [Unknown]
  - Impaired healing [Unknown]
  - Pregnancy [Recovered/Resolved]
  - Impaired work ability [Unknown]
  - Social problem [Unknown]
  - Haemorrhoids [Unknown]
  - Constipation [Unknown]
  - Nasopharyngitis [Unknown]

NARRATIVE: CASE EVENT DATE: 20241001
